FAERS Safety Report 6021581-0 (Version None)
Quarter: 2008Q4

REPORT INFORMATION
  Report Type: 
  Country: None (occurrence: None)
  Receive Date: 20081229
  Receipt Date: 20081222
  Transmission Date: 20090506
  Serious: Yes (Death)
  Sender: FDA-Public Use
  Company Number: PHHY2008JP33149

PATIENT
  Sex: Female

DRUGS (3)
  1. DIOVAN [Suspect]
     Indication: HYPERTENSION
     Dosage: 80 MG, QD
     Route: 048
     Dates: start: 20070912, end: 20071225
  2. MADOPAR [Concomitant]
     Dosage: UNK
     Route: 048
     Dates: start: 20070911, end: 20071225
  3. CABASER [Concomitant]
     Dosage: 0.25 MG
     Route: 048
     Dates: start: 20070911, end: 20071225

REACTIONS (1)
  - PNEUMONIA [None]
